FAERS Safety Report 10228354 (Version 1)
Quarter: 2014Q2

REPORT INFORMATION
  Report Type: Report from Study
  Country: US (occurrence: US)
  Receive Date: 20140610
  Receipt Date: 20140610
  Transmission Date: 20141212
  Serious: Yes (Other)
  Sender: FDA-Public Use
  Company Number: US-B.I. PHARMACEUTICALS,INC./RIDGEFIELD-2014-BI-24822BI

PATIENT
  Sex: Female

DRUGS (1)
  1. GILOTRIF [Suspect]
     Indication: PRODUCT USED FOR UNKNOWN INDICATION
     Dosage: 40 MG
     Route: 050
     Dates: start: 20140411, end: 20140602

REACTIONS (1)
  - Herpes zoster [Unknown]
